FAERS Safety Report 5301902-4 (Version None)
Quarter: 2007Q2

REPORT INFORMATION
  Report Type: 
  Country: None (occurrence: None)
  Receive Date: 20070419
  Receipt Date: 20070410
  Transmission Date: 20071010
  Serious: Yes (Hospitalization)
  Sender: FDA-Public Use
  Company Number: PHBS2007BR06199

PATIENT
  Age: 57 Year
  Sex: Female

DRUGS (1)
  1. VOLTAREN [Suspect]
     Indication: MUSCULOSKELETAL PAIN
     Dosage: 75 MG/DAY
     Route: 030

REACTIONS (12)
  - HYPOKINESIA [None]
  - INJECTION SITE DISCOLOURATION [None]
  - INJECTION SITE MOVEMENT IMPAIRMENT [None]
  - INJECTION SITE NECROSIS [None]
  - INJECTION SITE PAIN [None]
  - MUSCLE NECROSIS [None]
  - PARAESTHESIA [None]
  - SCAR [None]
  - SKIN DISORDER [None]
  - SKIN GRAFT [None]
  - SUBCUTANEOUS ABSCESS [None]
  - WOUND DEBRIDEMENT [None]
